FAERS Safety Report 4879735-2 (Version None)
Quarter: 2006Q1

REPORT INFORMATION
  Report Type: 
  Country: None (occurrence: None)
  Receive Date: 20060113
  Receipt Date: 20060105
  Transmission Date: 20060701
  Serious: Yes (Hospitalization)
  Sender: FDA-Public Use
  Company Number: US-AVENTIS-200610168GDDC

PATIENT

DRUGS (1)
  1. LANTUS [Suspect]
     Route: 058

REACTIONS (4)
  - ASTHMA [None]
  - BRONCHITIS CHRONIC [None]
  - COUGH [None]
  - DYSPNOEA [None]
